FAERS Safety Report 7770036-1 (Version None)
Quarter: 2011Q3

REPORT INFORMATION
  Report Type: 
  Country: None (occurrence: None)
  Receive Date: 20110922
  Receipt Date: 20100113
  Transmission Date: 20111222
  Serious: Yes (Other)
  Sender: FDA-Public Use
  Company Number: US-ASTRAZENECA-2010SE53444

PATIENT
  Age: 16777 Day
  Sex: Male

DRUGS (5)
  1. PHENOBARBITAL TAB [Concomitant]
     Route: 048
     Dates: start: 20030101
  2. SEROQUEL [Suspect]
     Dosage: 100 TO 350 MG
     Route: 048
     Dates: start: 20030527, end: 20060322
  3. KEFLEX [Concomitant]
     Route: 048
     Dates: start: 20030101
  4. ZOLOFT [Concomitant]
     Route: 048
     Dates: start: 20030101
  5. ADVIL LIQUI-GELS [Concomitant]
     Route: 048
     Dates: start: 20030101

REACTIONS (7)
  - CELLULITIS [None]
  - MAJOR DEPRESSION [None]
  - ABSCESS [None]
  - CEREBROVASCULAR ACCIDENT [None]
  - GROIN ABSCESS [None]
  - DIABETES MELLITUS INADEQUATE CONTROL [None]
  - OBESITY [None]
